FAERS Safety Report 24810174 (Version 1)
Quarter: 2025Q1

REPORT INFORMATION
  Report Type: Spontaneous
  Country: FR (occurrence: FR)
  Receive Date: 20250106
  Receipt Date: 20250106
  Transmission Date: 20250409
  Serious: Yes (Hospitalization)
  Sender: MYLAN
  Company Number: None

PATIENT
  Age: 65 Year
  Sex: Male

DRUGS (3)
  1. METHOTREXATE [Interacting]
     Active Substance: METHOTREXATE
     Indication: Psoriatic arthropathy
     Dosage: 10 MILLIGRAM, QW
     Route: 058
     Dates: start: 2021, end: 20241030
  2. STELARA [Interacting]
     Active Substance: USTEKINUMAB
     Indication: Psoriatic arthropathy
     Route: 042
     Dates: start: 202301, end: 20241030
  3. ANAKINRA [Interacting]
     Active Substance: ANAKINRA
     Indication: Psoriatic arthropathy
     Dosage: 100 MILLIGRAM, QD
     Route: 058
     Dates: start: 202312, end: 20241030

REACTIONS (2)
  - Neurocryptococcosis [Recovering/Resolving]
  - Drug interaction [Unknown]

NARRATIVE: CASE EVENT DATE: 20240701
